FAERS Safety Report 5762371-3 (Version None)
Quarter: 2008Q2

REPORT INFORMATION
  Report Type: 
  Country: None (occurrence: None)
  Receive Date: 20080609
  Receipt Date: 20080530
  Transmission Date: 20081010
  Serious: Yes (Other)
  Sender: FDA-Public Use
  Company Number: US-ROCHE-567745

PATIENT
  Age: 24 Year
  Sex: Male

DRUGS (5)
  1. ACCUTANE [Suspect]
     Indication: ACNE
     Dosage: FIRST COURSE
     Route: 065
     Dates: start: 19871001, end: 19880101
  2. ACCUTANE [Suspect]
     Dosage: SECOND COURSE
     Route: 065
     Dates: start: 19890501, end: 19891001
  3. ACCUTANE [Suspect]
     Dosage: THIRD COURSE
     Route: 065
     Dates: start: 19911101, end: 19920401
  4. ACCUTANE [Suspect]
     Dosage: FOURTH COURSE
     Route: 065
     Dates: start: 19930301, end: 19930501
  5. ACCUTANE [Suspect]
     Dosage: 40 MG ON ODD DAYS AND 80 MG ON EVEN DAYS
     Route: 065
     Dates: start: 19940201, end: 19940301

REACTIONS (1)
  - ERECTILE DYSFUNCTION [None]
